FAERS Safety Report 10736514 (Version 1)
Quarter: 2015Q1

REPORT INFORMATION
  Report Type: Spontaneous
  Country: NL (occurrence: None)
  Receive Date: 20150122
  Receipt Date: 20150122
  Transmission Date: 20150721
  Serious: Yes (Life-Threatening, Other)
  Sender: FDA-Public Use
  Company Number: 2015NL000415

PATIENT
  Age: 85 Year
  Sex: Male

DRUGS (1)
  1. ELIGARD [Suspect]
     Active Substance: LEUPROLIDE ACETATE
     Indication: PROSTATE CANCER
     Dosage: 1 TIME PER 6 MONTHS
     Route: 058
     Dates: start: 20111205, end: 20111205

REACTIONS (2)
  - Terminal state [None]
  - Pancreatic carcinoma [None]

NARRATIVE: CASE EVENT DATE: 201412
